FAERS Safety Report 8382972-6 (Version None)
Quarter: 2012Q2

REPORT INFORMATION
  Report Type: 
  Country: None (occurrence: None)
  Receive Date: 20120522
  Receipt Date: 20120507
  Transmission Date: 20120825
  Serious: Yes (Other)
  Sender: FDA-Public Use
  Company Number: 217410

PATIENT
  Age: 28 Year
  Sex: Female
  Weight: 130 kg

DRUGS (1)
  1. INNOHEP [Suspect]
     Indication: THROMBOSIS PROPHYLAXIS
     Dosage: 4500 IU (1 IN 1 D), SUBCUTANEOUS
     Route: 058
     Dates: start: 20120304, end: 20120403

REACTIONS (1)
  - DEEP VEIN THROMBOSIS [None]
